FAERS Safety Report 11345937 (Version 1)
Quarter: 2015Q3

REPORT INFORMATION
  Report Type: Spontaneous
  Country: US (occurrence: US)
  Receive Date: 20150803
  Receipt Date: 20150803
  Transmission Date: 20151125
  Serious: No
  Sender: FDA-Public Use
  Company Number: US-ELI_LILLY_AND_COMPANY-US200909003482

PATIENT
  Age: 29 Year
  Sex: Female

DRUGS (5)
  1. STRATTERA [Suspect]
     Active Substance: ATOMOXETINE HYDROCHLORIDE
     Indication: ATTENTION DEFICIT/HYPERACTIVITY DISORDER
     Dosage: 80 MG, UNKNOWN
     Route: 065
  2. MOBIC [Concomitant]
     Active Substance: MELOXICAM
  3. TRAZODONE [Concomitant]
     Active Substance: TRAZODONE HYDROCHLORIDE
  4. LAMICTAL [Concomitant]
     Active Substance: LAMOTRIGINE
  5. ANTIHISTAMINES [Concomitant]
     Active Substance: ANTIHISTAMINES NOS

REACTIONS (3)
  - Dry eye [Unknown]
  - Eye movement disorder [Unknown]
  - Ocular discomfort [Unknown]
